FAERS Safety Report 16442364 (Version 1)
Quarter: 2019Q2

REPORT INFORMATION
  Report Type: Report from Study
  Country: None (occurrence: US)
  Receive Date: 20190617
  Receipt Date: 20190617
  Transmission Date: 20190711
  Serious: No
  Sender: FDA-Public Use
  Company Number: US-US WORLDMEDS, LLC-USW201904-000758

PATIENT
  Age: 49 Year
  Sex: Male

DRUGS (10)
  1. RASAGILINE. [Concomitant]
     Active Substance: RASAGILINE
  2. GOCOVRI [Concomitant]
     Active Substance: AMANTADINE
  3. TIGAN [Concomitant]
     Active Substance: TRIMETHOBENZAMIDE HYDROCHLORIDE
     Dates: start: 20190411
  4. RYTARY [Concomitant]
     Active Substance: CARBIDOPA\LEVODOPA
  5. BUSPAR [Concomitant]
     Active Substance: BUSPIRONE HYDROCHLORIDE
  6. AMANTADINE. [Concomitant]
     Active Substance: AMANTADINE HYDROCHLORIDE
  7. APOKYN [Suspect]
     Active Substance: APOMORPHINE HYDROCHLORIDE
     Indication: PARKINSON^S DISEASE
     Route: 058
     Dates: start: 20190414
  8. SINEMET [Concomitant]
     Active Substance: CARBIDOPA\LEVODOPA
  9. APOKYN [Suspect]
     Active Substance: APOMORPHINE HYDROCHLORIDE
     Dates: start: 20190415
  10. CARBIDOPA/LEVODOPA [Concomitant]
     Active Substance: CARBIDOPA\LEVODOPA

REACTIONS (3)
  - Nausea [Recovered/Resolved]
  - Cold sweat [Recovered/Resolved]
  - Dizziness [Recovered/Resolved]

NARRATIVE: CASE EVENT DATE: 20190414
